FAERS Safety Report 4657084-5 (Version None)
Quarter: 2005Q2

REPORT INFORMATION
  Report Type: 
  Country: None (occurrence: None)
  Receive Date: 20050506
  Receipt Date: 20050425
  Transmission Date: 20051028
  Serious: Yes (Other)
  Sender: FDA-Public Use
  Company Number: S05-USA-01822-01

PATIENT
  Age: 83 Year
  Sex: Female
  Weight: 53.978 kg

DRUGS (10)
  1. NAMENDA [Suspect]
     Indication: DEMENTIA ALZHEIMER'S TYPE
     Dosage: 5 MG BID PO
     Route: 048
     Dates: start: 20040220, end: 20040303
  2. NAMENDA [Suspect]
     Indication: DEMENTIA ALZHEIMER'S TYPE
     Dosage: 5 MG BID PO
     Route: 048
     Dates: start: 20040308, end: 20040312
  3. FAMVIR [Suspect]
     Indication: HERPES ZOSTER
     Dosage: 500 MG TID
     Dates: start: 20040101, end: 20040301
  4. ARICEPT [Concomitant]
  5. ZOLOFT [Concomitant]
  6. BUMEX [Concomitant]
  7. DARVOCET N (PROPOXYPHENE + ACETAMINOPHEN) [Concomitant]
  8. TYLENOL [Concomitant]
  9. LEVAQUIN [Concomitant]
  10. FORTAZ [Concomitant]

REACTIONS (2)
  - HERPES ZOSTER [None]
  - LEUKOPENIA [None]
